FAERS Safety Report 4516455-8 (Version None)
Quarter: 2004Q4

REPORT INFORMATION
  Report Type: 
  Country: None (occurrence: None)
  Receive Date: 20041202
  Receipt Date: 20040927
  Transmission Date: 20050328
  Serious: No
  Sender: FDA-Public Use
  Company Number: US-GLAXOSMITHKLINE-A0527421A

PATIENT
  Age: 52 Year
  Sex: Female

DRUGS (2)
  1. AUGMENTIN '125' [Suspect]
     Indication: SKIN INFECTION
     Dosage: 1000MG TWICE PER DAY
     Route: 048
     Dates: start: 20040630
  2. CENTAURY [Concomitant]

REACTIONS (1)
  - DRY MOUTH [None]
